FAERS Safety Report 8769787 (Version 1)
Quarter: 2012Q4

REPORT INFORMATION
  Report Type: 
  Country: GB (occurrence: GB)
  Receive Date: 20120905
  Receipt Date: 20120905
  Transmission Date: 20130627
  Serious: Yes (Other)
  Sender: FDA-Public Use
  Company Number: GB-TEVA-356069ISR

PATIENT
  Age: 78 Year
  Sex: Male
  Weight: 62 kg

DRUGS (12)
  1. METOCLOPRAMIDE [Suspect]
     Dates: start: 20120731
  2. MOMETASONE FUROATE [Concomitant]
     Dates: start: 20120416, end: 20120706
  3. MOMETASONE FUROATE [Concomitant]
     Dates: start: 20120808
  4. SIMVASTATIN [Concomitant]
     Dates: start: 20120416
  5. OXYBUTYNIN [Concomitant]
     Dates: start: 20120511, end: 20120608
  6. ISPAGHULA HUSK [Concomitant]
     Dates: start: 20120601, end: 20120602
  7. PEPPERMINT OIL [Concomitant]
     Dates: start: 20120601, end: 20120629
  8. SULFASALAZINE [Concomitant]
     Dates: start: 20120601
  9. TAMSULOSIN HYDROCHLORIDE [Concomitant]
     Dates: start: 20120601, end: 20120701
  10. FINASTERIDE [Concomitant]
     Dates: start: 20120618, end: 20120813
  11. FLUDROCORTISONE [Concomitant]
     Dates: start: 20120731, end: 20120801
  12. CYCLIZINE [Concomitant]
     Dates: start: 20120808

REACTIONS (2)
  - Urinary retention [Recovered/Resolved]
  - Dysuria [Recovered/Resolved]
